FAERS Safety Report 10485647 (Version 1)
Quarter: 2014Q4

REPORT INFORMATION
  Report Type: Spontaneous
  Country: ES (occurrence: ES)
  Receive Date: 20141001
  Receipt Date: 20141001
  Transmission Date: 20150528
  Serious: Yes (Death, Other)
  Sender: FDA-Public Use
  Company Number: PHHY2014ES125695

PATIENT
  Age: 60 Year
  Sex: Female

DRUGS (4)
  1. AMSACRINE [Suspect]
     Active Substance: AMSACRINE
     Indication: ACUTE MYELOID LEUKAEMIA RECURRENT
  2. FLUCONAZOLE. [Concomitant]
     Active Substance: FLUCONAZOLE
     Indication: PROPHYLAXIS
     Dosage: 200 MG, PER DAY
  3. CYTARABINE. [Suspect]
     Active Substance: CYTARABINE
     Indication: ACUTE MYELOID LEUKAEMIA RECURRENT
  4. VORICONAZOLE. [Suspect]
     Active Substance: VORICONAZOLE

REACTIONS (11)
  - Diarrhoea [Recovered/Resolved]
  - Staphylococcal infection [Recovered/Resolved]
  - Neurotoxicity [Recovered/Resolved]
  - Candida infection [Recovered/Resolved]
  - Colitis [Recovered/Resolved]
  - Acute myeloid leukaemia [Fatal]
  - Pyrexia [Recovered/Resolved]
  - Mucosal inflammation [Recovered/Resolved]
  - Neutropenia [Recovered/Resolved]
  - Fungal infection [Recovered/Resolved]
  - Abdominal pain [Recovered/Resolved]
